FAERS Safety Report 9307882 (Version 2)
Quarter: 2013Q2

REPORT INFORMATION
  Report Type: Spontaneous
  Country: DE (occurrence: DE)
  Receive Date: 20130524
  Receipt Date: 20130524
  Transmission Date: 20140414
  Serious: Yes (Hospitalization, Other)
  Sender: FDA-Public Use
  Company Number: DE-UCBSA-079449

PATIENT
  Sex: Male
  Weight: 77 kg

DRUGS (11)
  1. NEUPRO [Suspect]
     Indication: RESTLESS LEGS SYNDROME
     Dosage: DOSE: 1 MG
     Dates: start: 201103, end: 201209
  2. NEUPRO [Suspect]
     Indication: RESTLESS LEGS SYNDROME
     Dosage: DOSE: 5 MG
     Dates: start: 201209, end: 2012
  3. NEUPRO [Suspect]
     Indication: RESTLESS LEGS SYNDROME
     Dosage: DOSE: 2 MG
     Dates: start: 2012, end: 20130302
  4. SERTRALIN [Suspect]
     Indication: DEPRESSION
  5. VENLAFAXINE [Suspect]
     Indication: DEPRESSION
  6. MIRTAZAPINE [Suspect]
     Indication: DEPRESSION
  7. DOXEPIN [Suspect]
     Indication: DEPRESSION
  8. VALDOXAN [Suspect]
     Indication: SLEEP DISORDER
     Dosage: DOSE: 50 MG
     Dates: start: 201211, end: 201303
  9. ZOPICLONE [Suspect]
     Indication: DEPRESSION
  10. LYRICA [Suspect]
  11. DIAZEPAM [Concomitant]
     Indication: RESTLESSNESS
     Dates: start: 201212

REACTIONS (18)
  - Syncope [Unknown]
  - Depressive symptom [Recovering/Resolving]
  - Paraesthesia [Recovering/Resolving]
  - Restlessness [Recovering/Resolving]
  - Agitation [Recovered/Resolved]
  - Sleep disorder [Unknown]
  - Fatigue [Unknown]
  - Disturbance in attention [Recovering/Resolving]
  - Disturbance in attention [Recovering/Resolving]
  - Libido decreased [Unknown]
  - Stress at work [Unknown]
  - Dependence [Unknown]
  - Muscle spasms [Unknown]
  - Logorrhoea [Recovering/Resolving]
  - Stress [Unknown]
  - Restless legs syndrome [Unknown]
  - Overdose [Unknown]
  - Weight increased [Unknown]
